FAERS Safety Report 6943080-1 (Version None)
Quarter: 2010Q3

REPORT INFORMATION
  Report Type: 
  Country: None (occurrence: None)
  Receive Date: 20100826
  Receipt Date: 20100818
  Transmission Date: 20110219
  Serious: Yes (Hospitalization)
  Sender: FDA-Public Use
  Company Number: GXKR2010JP08722

PATIENT
  Age: 79 Year
  Sex: Female

DRUGS (8)
  1. DEXAMETHASONE (NGX) [Suspect]
     Indication: MULTIPLE MYELOMA
     Dosage: 8 MG/DAY
     Route: 065
     Dates: start: 20080317
  2. DEXAMETHASONE (NGX) [Suspect]
     Dosage: 8 MG/DAY
     Route: 065
     Dates: start: 20080320
  3. DEXAMETHASONE (NGX) [Suspect]
     Dosage: 8 MG/DAY
     Route: 065
     Dates: start: 20080407
  4. DEXAMETHASONE (NGX) [Suspect]
     Dosage: 8 MG/DAY
     Route: 065
     Dates: start: 20080410
  5. BORTEZOMIB [Suspect]
     Indication: MULTIPLE MYELOMA
     Dosage: 0.7 MG/M2/DAY
     Route: 065
     Dates: start: 20080317
  6. BORTEZOMIB [Suspect]
     Dosage: 0.7 MG/M2/DAY
     Route: 065
     Dates: start: 20080320
  7. BORTEZOMIB [Suspect]
     Dosage: 0.7 MG/M2/DAY
     Route: 065
     Dates: start: 20080407
  8. BORTEZOMIB [Suspect]
     Dosage: 0.7 MG/M2/DAY
     Route: 065
     Dates: start: 20080410

REACTIONS (7)
  - ACUTE MYOCARDIAL INFARCTION [None]
  - ANGINA PECTORIS [None]
  - CHEST PAIN [None]
  - CORONARY ARTERY STENOSIS [None]
  - MYOCARDIAL ISCHAEMIA [None]
  - STENT PLACEMENT [None]
  - VENTRICULAR HYPOKINESIA [None]
